FAERS Safety Report 4399188-0 (Version None)
Quarter: 2004Q3

REPORT INFORMATION
  Report Type: 
  Country: None (occurrence: None)
  Receive Date: 20040716
  Receipt Date: 20040712
  Transmission Date: 20050211
  Serious: Yes (Death, Other)
  Sender: FDA-Public Use
  Company Number: PHNU2004PL02468

PATIENT
  Age: 26 Year
  Sex: Female

DRUGS (2)
  1. TEGRETOL [Suspect]
     Indication: TEMPORAL LOBE EPILEPSY
     Dosage: 400MG/DAY
     Route: 048
     Dates: end: 20030401
  2. TEGRETOL [Suspect]
     Dosage: 800MG/DAY
     Route: 048
     Dates: start: 20030401

REACTIONS (7)
  - ANXIETY [None]
  - BLOOD PRESSURE DECREASED [None]
  - CONVULSION [None]
  - DEATH [None]
  - ECCHYMOSIS [None]
  - PERIPHERAL COLDNESS [None]
  - SPEECH DISORDER [None]
